FAERS Safety Report 6110024-4 (Version None)
Quarter: 2009Q1

REPORT INFORMATION
  Report Type: 
  Country: None (occurrence: None)
  Receive Date: 20090310
  Receipt Date: 20081209
  Transmission Date: 20090719
  Serious: No
  Sender: FDA-Public Use
  Company Number: A0759582A

PATIENT
  Age: 29 Year
  Sex: Female

DRUGS (1)
  1. NICORETTE [Suspect]
     Dates: start: 20081204, end: 20081205

REACTIONS (5)
  - MALAISE [None]
  - NAUSEA [None]
  - NEURALGIA [None]
  - OCULAR HYPERAEMIA [None]
  - TREMOR [None]
